FAERS Safety Report 5146549-8 (Version None)
Quarter: 2006Q4

REPORT INFORMATION
  Report Type: 
  Country: None (occurrence: None)
  Receive Date: 20061109
  Receipt Date: 20061027
  Transmission Date: 20070319
  Serious: Yes (Hospitalization)
  Sender: FDA-Public Use
  Company Number: US-JNJFOC-20060705351

PATIENT
  Sex: Female
  Weight: 83.92 kg

DRUGS (4)
  1. ORTHO EVRA [Suspect]
     Indication: CONTRACEPTION
     Route: 062
  2. AVANDIA [Concomitant]
     Indication: DIABETES MELLITUS
  3. GLUCOTROL [Concomitant]
     Indication: DIABETES MELLITUS
  4. ZOLOFT [Concomitant]
     Indication: DEPRESSION

REACTIONS (1)
  - SUPERIOR SAGITTAL SINUS THROMBOSIS [None]
